FAERS Safety Report 23045671 (Version 1)
Quarter: 2023Q4

REPORT INFORMATION
  Report Type: Spontaneous
  Country: US (occurrence: US)
  Receive Date: 20231009
  Receipt Date: 20231009
  Transmission Date: 20240110
  Serious: No
  Sender: FDA-Public Use
  Company Number: US-002147023-NVSC2023US217477

PATIENT
  Sex: Female

DRUGS (1)
  1. LEQVIO [Suspect]
     Active Substance: INCLISIRAN SODIUM
     Indication: Low density lipoprotein increased
     Dosage: 1 DOSAGE FORM (284/1.5 MG/ML) (ONE SINGLE DOSE)
     Route: 058
     Dates: start: 20230701, end: 20231005

REACTIONS (1)
  - Blister [Unknown]
